FAERS Safety Report 7558497-4 (Version None)
Quarter: 2011Q2

REPORT INFORMATION
  Report Type: 
  Country: None (occurrence: None)
  Receive Date: 20110620
  Receipt Date: 20110606
  Transmission Date: 20111010
  Serious: Yes (Death)
  Sender: FDA-Public Use
  Company Number: FR-GENENTECH-319488

PATIENT
  Sex: Male
  Weight: 82 kg

DRUGS (10)
  1. ZOLPIDEM [Concomitant]
     Indication: INSOMNIA
  2. RANIBIZUMAB [Suspect]
     Indication: AGE-RELATED MACULAR DEGENERATION
     Dosage: 0.05 ML, UNKNOWN
     Route: 031
     Dates: start: 20080912
  3. PERINDOPRIL ERBUMINE [Concomitant]
     Indication: PRODUCT USED FOR UNKNOWN INDICATION
  4. OXEOL [Concomitant]
     Indication: CHRONIC OBSTRUCTIVE PULMONARY DISEASE
  5. RANIBIZUMAB [Suspect]
     Dosage: 0.05 ML, UNKNOWN
     Route: 031
     Dates: start: 20090331
  6. RANIBIZUMAB [Suspect]
     Dosage: 0.05 ML, UNKNOWN
     Route: 031
     Dates: start: 20090428
  7. AMLODIPINE [Concomitant]
     Indication: ANGINA PECTORIS
  8. LESCOL [Concomitant]
     Indication: HYPERCHOLESTEROLAEMIA
  9. NUTRITIONAL SUPPLEMENT NOS [Concomitant]
     Indication: PRODUCT USED FOR UNKNOWN INDICATION
  10. CLOPIDOGREL [Concomitant]
     Indication: ANGINA PECTORIS

REACTIONS (3)
  - MYOCARDIAL INFARCTION [None]
  - ACUTE PULMONARY OEDEMA [None]
  - ANGINA PECTORIS [None]
